FAERS Safety Report 18464650 (Version 1)
Quarter: 2020Q4

REPORT INFORMATION
  Report Type: Spontaneous
  Country: US (occurrence: US)
  Receive Date: 20201104
  Receipt Date: 20201104
  Transmission Date: 20210114
  Serious: No
  Sender: FDA-Public Use
  Company Number: US-PFIZER INC-2020426213

PATIENT
  Age: 62 Year
  Sex: Female
  Weight: 47.17 kg

DRUGS (8)
  1. BOSULIF [Suspect]
     Active Substance: BOSUTINIB MONOHYDRATE
     Indication: CHRONIC MYELOID LEUKAEMIA
     Dosage: 500 MG, DAILY
     Route: 048
     Dates: start: 20201016, end: 202010
  2. VITAMIN D3 [Concomitant]
     Active Substance: CHOLECALCIFEROL
     Dosage: UNK
  3. PANTOPRAZOLE [Concomitant]
     Active Substance: PANTOPRAZOLE
     Dosage: UNK
  4. PEPCID [Concomitant]
     Active Substance: FAMOTIDINE
     Dosage: 20 MG
  5. ADVIL [IBUPROFEN] [Concomitant]
     Active Substance: IBUPROFEN
     Dosage: UNK
  6. CALCIUM + D3 [CALCIUM CARBONATE;COLECALCIFEROL] [Concomitant]
     Dosage: UNK (CALCIUM + D3 600 MG-500 TABLET ER)
  7. ZOFRAN [Concomitant]
     Active Substance: ONDANSETRON HYDROCHLORIDE
     Dosage: 4 MG
  8. IBUPROFEN [IBUPROFEN SODIUM] [Concomitant]
     Dosage: 200 MG

REACTIONS (2)
  - Headache [Unknown]
  - Nausea [Unknown]
